FAERS Safety Report 8022830-X (Version None)
Quarter: 2012Q1

REPORT INFORMATION
  Report Type: 
  Country: None (occurrence: None)
  Receive Date: 20120104
  Receipt Date: 20111226
  Transmission Date: 20120608
  Serious: Yes (Hospitalization, Other)
  Sender: FDA-Public Use
  Company Number: TW-ROCHE-1021419

PATIENT
  Sex: Female
  Weight: 88 kg

DRUGS (8)
  1. OMALIZUMAB [Suspect]
     Indication: ASTHMA
     Route: 058
     Dates: start: 20111104
  2. COMBIVENT [Concomitant]
  3. AMITRIL [Concomitant]
  4. GLUCOPHAGE [Concomitant]
  5. PREDNISOLONE [Concomitant]
     Dates: start: 20111112
  6. CARVEDILOL [Concomitant]
  7. SOLUCORT [Concomitant]
     Dates: start: 20111104
  8. SINGULAIR [Concomitant]
     Dates: start: 20111107

REACTIONS (5)
  - RESPIRATORY FAILURE [None]
  - PRODUCTIVE COUGH [None]
  - HYPERGLYCAEMIA [None]
  - RENAL FAILURE ACUTE [None]
  - PNEUMONIA [None]
